FAERS Safety Report 15164775 (Version 2)
Quarter: 2018Q3

REPORT INFORMATION
  Report Type: Spontaneous
  Country: US (occurrence: US)
  Receive Date: 20180719
  Receipt Date: 20180921
  Transmission Date: 20181010
  Serious: No
  Sender: FDA-Public Use
  Company Number: US-SA-2018SA192127

PATIENT
  Age: 30 Year
  Sex: Female

DRUGS (3)
  1. DUPIXENT [Suspect]
     Active Substance: DUPILUMAB
     Indication: DERMATITIS ATOPIC
     Dosage: 600 MG, 1X
     Route: 058
     Dates: start: 20180710, end: 20180710
  2. DUPIXENT [Suspect]
     Active Substance: DUPILUMAB
     Dosage: 300 MG, QOW
     Route: 058
  3. BENADRYL [ACRIVASTINE] [Concomitant]
     Active Substance: ACRIVASTINE

REACTIONS (6)
  - Hypoaesthesia [Recovered/Resolved]
  - Acarodermatitis [Unknown]
  - Anxiety [Recovered/Resolved]
  - Injection site erythema [Unknown]
  - Paraesthesia [Recovered/Resolved]
  - Pruritus [Unknown]

NARRATIVE: CASE EVENT DATE: 201807
